FAERS Safety Report 7700716-5 (Version None)
Quarter: 2011Q3

REPORT INFORMATION
  Report Type: 
  Country: None (occurrence: None)
  Receive Date: 20110822
  Receipt Date: 20110815
  Transmission Date: 20111222
  Serious: Yes (Other)
  Sender: FDA-Public Use
  Company Number: US-BAYER-2011-068890

PATIENT
  Age: 70 Year
  Sex: Male

DRUGS (5)
  1. METOPROLOL [Concomitant]
     Dosage: 25 MG DAILY
     Route: 048
  2. ANALGESICS [Concomitant]
     Indication: PAIN
  3. NEXAVAR [Suspect]
     Indication: RENAL CELL CARCINOMA
     Dosage: 400 MG, BID
     Route: 048
     Dates: start: 20110802
  4. METOPROLOL [Concomitant]
     Indication: BLOOD PRESSURE INCREASED
     Dosage: 25 MG DAILY + EXTRA TABLET DAILY
     Route: 048
     Dates: start: 20110501, end: 20110501
  5. COUMADIN [Concomitant]
     Dosage: 6 MG/DAY ALTERNATING WITH 5 MG/DAY
     Route: 048

REACTIONS (10)
  - STOMATITIS [None]
  - OROPHARYNGEAL PAIN [None]
  - LIMB DISCOMFORT [None]
  - PARANEOPLASTIC SYNDROME [None]
  - BLOOD PRESSURE INCREASED [None]
  - HAEMOPTYSIS [None]
  - DRY MOUTH [None]
  - ARTHRALGIA [None]
  - ATRIAL FIBRILLATION [None]
  - MYALGIA [None]
